FAERS Safety Report 5098395-1 (Version None)
Quarter: 2006Q3

REPORT INFORMATION
  Report Type: 
  Country: None (occurrence: None)
  Receive Date: 20060906
  Receipt Date: 20060110
  Transmission Date: 20061208
  Serious: No
  Sender: FDA-Public Use
  Company Number: US-GLAXOSMITHKLINE-A0588598A

PATIENT
  Age: 74 Year
  Sex: Female
  Weight: 72.7 kg

DRUGS (6)
  1. REQUIP [Suspect]
     Indication: RESTLESS LEGS SYNDROME
     Dosage: 2MG PER DAY
     Route: 048
  2. WARFARIN SODIUM [Concomitant]
     Dosage: 2MG PER DAY
     Route: 048
  3. COSOPT [Concomitant]
  4. LIPITOR [Concomitant]
     Dosage: 20MG PER DAY
     Route: 048
  5. DIOVAN HCT [Concomitant]
     Route: 048
  6. NIFEDIPINE [Concomitant]
     Dosage: 30MG PER DAY
     Route: 048

REACTIONS (1)
  - OEDEMA PERIPHERAL [None]
